FAERS Safety Report 5836639-6 (Version None)
Quarter: 2008Q3

REPORT INFORMATION
  Report Type: 
  Country: None (occurrence: None)
  Receive Date: 20080807
  Receipt Date: 20080731
  Transmission Date: 20090109
  Serious: Yes (Other)
  Sender: FDA-Public Use
  Company Number: JP-BAYER-200811613BYL

PATIENT
  Age: 79 Year
  Sex: Female

DRUGS (1)
  1. ASPIRIN [Suspect]
     Indication: CEREBROVASCULAR ACCIDENT PROPHYLAXIS
     Dosage: AS USED: 100 MG  UNIT DOSE: 100 MG
     Route: 048
     Dates: end: 20080705

REACTIONS (1)
  - CYSTITIS HAEMORRHAGIC [None]
